FAERS Safety Report 20407180 (Version 1)
Quarter: 2022Q1

REPORT INFORMATION
  Report Type: Spontaneous
  Country: US (occurrence: None)
  Receive Date: 20220131
  Receipt Date: 20220131
  Transmission Date: 20220423
  Serious: No
  Sender: FDA-Public Use
  Company Number: None

PATIENT
  Age: 55 Year
  Sex: Male
  Weight: 106.59 kg

DRUGS (4)
  1. PAXLOVID [Suspect]
     Active Substance: NIRMATRELVIR\RITONAVIR
     Indication: COVID-19
     Dates: start: 20220118, end: 20220122
  2. OLMESARTAN [Concomitant]
     Active Substance: OLMESARTAN
     Dates: start: 20211108
  3. CHLORTHALIDONE [Concomitant]
     Active Substance: CHLORTHALIDONE
     Dates: start: 20211108
  4. ASPIRIN [Concomitant]
     Active Substance: ASPIRIN
     Dates: start: 20211108

REACTIONS (3)
  - Diarrhoea [None]
  - Dysgeusia [None]
  - Chromaturia [None]

NARRATIVE: CASE EVENT DATE: 20220118
